FAERS Safety Report 6463315-1 (Version None)
Quarter: 2009Q4

REPORT INFORMATION
  Report Type: 
  Country: None (occurrence: None)
  Receive Date: 20091130
  Receipt Date: 20090621
  Transmission Date: 20100525
  Serious: Yes (Other)
  Sender: FDA-Public Use
  Company Number: US-AMGEN-QUU352618

PATIENT
  Sex: Female

DRUGS (2)
  1. ENBREL [Suspect]
     Indication: RHEUMATOID ARTHRITIS
     Route: 058
     Dates: start: 20090410
  2. LEFLUNOMIDE [Concomitant]

REACTIONS (6)
  - CONSTIPATION [None]
  - DEPRESSION [None]
  - HEADACHE [None]
  - IRRITABILITY [None]
  - LIP DRY [None]
  - NERVOUSNESS [None]
